FAERS Safety Report 5060262-7 (Version None)
Quarter: 2006Q3

REPORT INFORMATION
  Report Type: 
  Country: None (occurrence: None)
  Receive Date: 20060724
  Receipt Date: 20060629
  Transmission Date: 20061208
  Serious: Yes (Life-Threatening)
  Sender: FDA-Public Use
  Company Number: DE-MERCK-0606DEU00159

PATIENT
  Age: 81 Year
  Sex: Female
  Weight: 75 kg

DRUGS (4)
  1. TRUSOPT [Suspect]
     Indication: GLAUCOMA
     Route: 047
     Dates: start: 20060529, end: 20060606
  2. XANTHOPHYLL [Concomitant]
     Route: 065
     Dates: start: 20050101
  3. GINKGO [Concomitant]
     Route: 065
     Dates: start: 20050901
  4. MINERALS (UNSPECIFIED) AND VITAMINS (UNSPECIFIED) [Concomitant]
     Route: 065
     Dates: start: 20040101

REACTIONS (10)
  - ANGINA PECTORIS [None]
  - BLOOD PRESSURE DECREASED [None]
  - CARDIOVASCULAR DISORDER [None]
  - CHILLS [None]
  - DIZZINESS [None]
  - DYSPNOEA [None]
  - FEAR [None]
  - FEELING COLD [None]
  - HEADACHE [None]
  - NAUSEA [None]
